FAERS Safety Report 5632107-5 (Version None)
Quarter: 2008Q1

REPORT INFORMATION
  Report Type: 
  Country: None (occurrence: None)
  Receive Date: 20080220
  Receipt Date: 20080211
  Transmission Date: 20080703
  Serious: Yes (Hospitalization)
  Sender: FDA-Public Use
  Company Number: B0508627A

PATIENT
  Age: 52 Year
  Sex: Male

DRUGS (7)
  1. ALKERAN [Suspect]
     Route: 065
     Dates: start: 20070601
  2. METOPROLOL TARTRATE [Concomitant]
     Route: 065
  3. PRIMPERAN INJ [Concomitant]
     Route: 065
  4. OMEPRAZOLE [Concomitant]
     Route: 065
  5. EUSAPRIM FORTE [Concomitant]
     Route: 065
  6. ACYCLOVIR [Concomitant]
     Route: 065
  7. UNKNOWN DRUG [Concomitant]
     Route: 065

REACTIONS (2)
  - LEUKOPENIA [None]
  - PYREXIA [None]
